FAERS Safety Report 11512590 (Version 1)
Quarter: 2015Q3

REPORT INFORMATION
  Report Type: Spontaneous
  Country: GB (occurrence: GB)
  Receive Date: 20150916
  Receipt Date: 20150916
  Transmission Date: 20151125
  Serious: Yes (Hospitalization, Other)
  Sender: FDA-Public Use
  Company Number: GB-ACTAVIS-2015-19485

PATIENT
  Age: 66 Year
  Sex: Male

DRUGS (3)
  1. SPIRONOLACTONE (UNKNOWN) [Suspect]
     Active Substance: SPIRONOLACTONE
     Indication: POLYURIA
     Dosage: 25 MG OD
     Route: 065
  2. BISOPROLOL (UNKNOWN) [Suspect]
     Active Substance: BISOPROLOL
     Indication: ATRIAL FLUTTER
     Dosage: 5 MG, DAILY
     Route: 065
  3. DIGOXIN (UNKNOWN) [Suspect]
     Active Substance: DIGOXIN
     Indication: ATRIAL FLUTTER
     Dosage: UNK
     Route: 065

REACTIONS (3)
  - Condition aggravated [Recovered/Resolved]
  - Cardiac failure congestive [Recovered/Resolved]
  - Drug ineffective [Unknown]
